FAERS Safety Report 9029952 (Version 2)
Quarter: 2013Q1

REPORT INFORMATION
  Report Type: Spontaneous
  Country: US (occurrence: US)
  Receive Date: 20130125
  Receipt Date: 20130322
  Transmission Date: 20140127
  Serious: Yes (Hospitalization)
  Sender: FDA-Public Use
  Company Number: US-BIOGENIDEC-2013BI007633

PATIENT
  Age: 41 Year
  Sex: Male

DRUGS (2)
  1. TYSABRI [Suspect]
     Indication: MULTIPLE SCLEROSIS
     Route: 042
     Dates: start: 20110825
  2. TYSABRI [Suspect]
     Indication: MULTIPLE SCLEROSIS
     Route: 042
     Dates: end: 20121115

REACTIONS (9)
  - Asthenia [Recovered/Resolved]
  - Hypoaesthesia [Recovered/Resolved]
  - Nitrite urine present [Recovered/Resolved]
  - Escherichia infection [Recovered/Resolved]
  - Sepsis [Unknown]
  - White blood cell count increased [Recovered/Resolved]
  - Urinary tract infection [Unknown]
  - Neurogenic bladder [Unknown]
  - Medical device complication [Unknown]
